FAERS Safety Report 4377074-X (Version None)
Quarter: 2004Q2

REPORT INFORMATION
  Report Type: 
  Country: None (occurrence: None)
  Receive Date: 20040614
  Receipt Date: 20040609
  Transmission Date: 20050107
  Serious: Yes (Other)
  Sender: FDA-Public Use
  Company Number: AU-ROCHE-370678

PATIENT
  Age: 60 Year
  Sex: Male

DRUGS (2)
  1. NAPROSYN [Suspect]
     Indication: PAIN
     Route: 048
     Dates: start: 20030618
  2. ACETAMINOPHEN W/ CODEINE [Suspect]
     Route: 048
     Dates: start: 20030618

REACTIONS (5)
  - CHEST DISCOMFORT [None]
  - DYSPNOEA [None]
  - FACE OEDEMA [None]
  - SWOLLEN TONGUE [None]
  - URTICARIA [None]
